FAERS Safety Report 14071981 (Version 2)
Quarter: 2021Q3

REPORT INFORMATION
  Report Type: Spontaneous
  Country: US (occurrence: US)
  Receive Date: 20171010
  Receipt Date: 20210728
  Transmission Date: 20211014
  Serious: No
  Sender: FDA-Public Use
  Company Number: US-SA-2017SA145357

PATIENT
  Age: 43 Year
  Sex: Female

DRUGS (2)
  1. DUPIXENT [Suspect]
     Active Substance: DUPILUMAB
     Indication: ECZEMA
  2. DUPIXENT [Suspect]
     Active Substance: DUPILUMAB
     Indication: PSORIASIS
     Dosage: 300 MG,QOW
     Route: 058
     Dates: start: 20170518

REACTIONS (7)
  - Eye pruritus [Recovering/Resolving]
  - Pruritus [Unknown]
  - Injection site bruising [Not Recovered/Not Resolved]
  - Erythema [Unknown]
  - Injection site nodule [Not Recovered/Not Resolved]
  - Product use in unapproved indication [Unknown]
  - Burning sensation [Unknown]

NARRATIVE: CASE EVENT DATE: 2017
